FAERS Safety Report 17875608 (Version 1)
Quarter: 2020Q2

REPORT INFORMATION
  Report Type: Spontaneous
  Country: US (occurrence: US)
  Receive Date: 20200609
  Receipt Date: 20200609
  Transmission Date: 20200714
  Serious: No
  Sender: FDA-Public Use
  Company Number: US-JNJFOC-20200605251

PATIENT

DRUGS (1)
  1. SPRAVATO [Suspect]
     Active Substance: ESKETAMINE
     Indication: PRODUCT USED FOR UNKNOWN INDICATION
     Dates: start: 20200601, end: 20200601

REACTIONS (8)
  - Nausea [Unknown]
  - Vertigo [Unknown]
  - Dizziness [Unknown]
  - Feeling abnormal [Unknown]
  - Feeling drunk [Unknown]
  - Hypoaesthesia [Unknown]
  - Limb discomfort [Unknown]
  - Hypokinesia [Unknown]

NARRATIVE: CASE EVENT DATE: 20200601
